FAERS Safety Report 18617973 (Version 2)
Quarter: 2021Q1

REPORT INFORMATION
  Report Type: Spontaneous
  Country: US (occurrence: US)
  Receive Date: 20201215
  Receipt Date: 20210111
  Transmission Date: 20210419
  Serious: Yes (Hospitalization, Other)
  Sender: FDA-Public Use
  Company Number: US-ELI_LILLY_AND_COMPANY-US202012001889

PATIENT
  Sex: Female
  Weight: 99.8 kg

DRUGS (2)
  1. BAMLANIVIMAB. [Suspect]
     Active Substance: BAMLANIVIMAB
     Indication: COVID-19
     Dosage: 700 MG, SINGLE
     Route: 042
     Dates: start: 20201117, end: 20201117
  2. ESTRADIOL. [Concomitant]
     Active Substance: ESTRADIOL
     Indication: ORAL CONTRACEPTION

REACTIONS (2)
  - Deep vein thrombosis [Recovering/Resolving]
  - Cough [Unknown]
